FAERS Safety Report 21898545 (Version 9)
Quarter: 2024Q3

REPORT INFORMATION
  Report Type: Report from Study
  Country: RU (occurrence: RU)
  Receive Date: 20230123
  Receipt Date: 20240708
  Transmission Date: 20241016
  Serious: Yes (Hospitalization)
  Sender: NOVARTIS
  Company Number: RU-002147023-NVSC2022RU249770

PATIENT
  Age: 55 Year
  Sex: Female
  Weight: 60.2 kg

DRUGS (18)
  1. PIQRAY [Suspect]
     Active Substance: ALPELISIB
     Indication: Breast cancer metastatic
     Dosage: 300 MG, QD
     Route: 048
     Dates: start: 20221025, end: 20221107
  2. PIQRAY [Suspect]
     Active Substance: ALPELISIB
     Indication: Breast cancer
     Dosage: 250 MG, QD
     Route: 048
     Dates: start: 20221108, end: 20221214
  3. RIBOCICLIB [Suspect]
     Active Substance: RIBOCICLIB
     Indication: Product used for unknown indication
     Dosage: 600 MG
     Route: 065
     Dates: start: 20211227, end: 20220314
  4. ZOLEDRONIC ACID [Suspect]
     Active Substance: ZOLEDRONIC ACID
     Indication: Product used for unknown indication
     Dosage: 4 MG, Q3MO
     Route: 042
     Dates: start: 201902
  5. METFORMIN [Concomitant]
     Active Substance: METFORMIN HYDROCHLORIDE
     Indication: Hypoglycaemia
     Dosage: 500 MG, QD (1 TIME PER DAY IN THE EVENING)
     Route: 048
     Dates: start: 20221028
  6. METFORMIN [Concomitant]
     Active Substance: METFORMIN HYDROCHLORIDE
     Dosage: 1000 MG, QD (500 MG 2 TIMES A DAY)
     Route: 048
     Dates: start: 20221029
  7. METFORMIN [Concomitant]
     Active Substance: METFORMIN HYDROCHLORIDE
     Dosage: 1500 MG, QD (500 MG IN THE MORNING AND 1000 MG IN THE EVENING)
     Route: 048
     Dates: start: 20221030
  8. METFORMIN [Concomitant]
     Active Substance: METFORMIN HYDROCHLORIDE
     Dosage: 1000 MG, BID (1000 MG IN THE MORNING AND 1000 MG IN THE EVENING)
     Route: 048
     Dates: start: 20221031
  9. METFORMIN [Concomitant]
     Active Substance: METFORMIN HYDROCHLORIDE
     Dosage: 1000 MG, BID (1000 MG IN THE MORNING AND 1000 MG IN THE EVENING)
     Route: 048
     Dates: start: 20221101
  10. METFORMIN [Concomitant]
     Active Substance: METFORMIN HYDROCHLORIDE
     Dosage: 1000 MG, BID (1000 MG IN THE MORNING AND 1000 MG IN THE EVENING)
     Route: 048
     Dates: start: 20221102
  11. METFORMIN [Concomitant]
     Active Substance: METFORMIN HYDROCHLORIDE
     Dosage: UNK
     Route: 048
  12. GLIMEPIRIDE [Concomitant]
     Active Substance: GLIMEPIRIDE
     Indication: Hypoglycaemia
     Dosage: 1 MG, QD (IN THE MORNING)
     Route: 048
     Dates: start: 20221028
  13. GLIMEPIRIDE [Concomitant]
     Active Substance: GLIMEPIRIDE
     Dosage: 1 MG, QD (IN THE MORNING)
     Route: 048
     Dates: start: 20221029
  14. GLIMEPIRIDE [Concomitant]
     Active Substance: GLIMEPIRIDE
     Dosage: 1 MG, QD (IN THE MORNING)
     Route: 048
     Dates: start: 20221030
  15. GLIMEPIRIDE [Concomitant]
     Active Substance: GLIMEPIRIDE
     Dosage: 1 MG, QD (IN THE MORNING)
     Route: 048
     Dates: start: 20221031
  16. GLIMEPIRIDE [Concomitant]
     Active Substance: GLIMEPIRIDE
     Dosage: 1 MG, BID (1000 MG IN THE MORNING AND 1000 MG IN THE EVENING))
     Route: 048
     Dates: start: 20221101
  17. GLIMEPIRIDE [Concomitant]
     Active Substance: GLIMEPIRIDE
     Dosage: 3 MG, QD (2000 MG IN THE MORNING AND 1000 MG IN THE EVENING)
     Route: 048
     Dates: start: 20221102
  18. GLIMEPIRIDE [Concomitant]
     Active Substance: GLIMEPIRIDE
     Dosage: UNK
     Route: 048

REACTIONS (9)
  - Diabetic ketoacidosis [Recovered/Resolved]
  - Hyperglycaemia [Recovered/Resolved]
  - Rash [Recovered/Resolved]
  - Hyperglycaemia [Not Recovered/Not Resolved]
  - Dry mouth [Unknown]
  - Polyuria [Unknown]
  - Polydipsia [Unknown]
  - Weight decreased [Unknown]
  - Blood glucose abnormal [Recovering/Resolving]

NARRATIVE: CASE EVENT DATE: 20221026
